FAERS Safety Report 10174074 (Version 1)
Quarter: 2014Q2

REPORT INFORMATION
  Report Type: Spontaneous
  Country: US (occurrence: None)
  Receive Date: 20140514
  Receipt Date: 20140514
  Transmission Date: 20141212
  Serious: Yes (Hospitalization)
  Sender: FDA-Public Use
  Company Number: None

PATIENT
  Age: 79 Year
  Sex: Female

DRUGS (7)
  1. WARFARIN [Suspect]
     Indication: ATRIAL FIBRILLATION
     Route: 048
     Dates: start: 20140203
  2. AMIODARONE [Concomitant]
  3. AMOXICILLIN [Concomitant]
  4. CARVEDILOL [Concomitant]
  5. DOCUSATE [Concomitant]
  6. FENTANYL PATCH [Concomitant]
  7. HYDROXYCHLOROQUINE [Concomitant]

REACTIONS (2)
  - Upper gastrointestinal haemorrhage [None]
  - International normalised ratio increased [None]
